FAERS Safety Report 4758723-0 (Version None)
Quarter: 2005Q3

REPORT INFORMATION
  Report Type: 
  Country: None (occurrence: None)
  Receive Date: 20050830
  Receipt Date: 20050830
  Transmission Date: 20060218
  Serious: Yes (Other)
  Sender: FDA-Public Use
  Company Number: None

PATIENT
  Sex: Male
  Weight: 114.1 kg

DRUGS (7)
  1. LEUPROLIDE ACETATE [Suspect]
     Indication: PROSTATE CANCER
     Dosage: SEE IMAGE
     Dates: start: 20040804, end: 20040824
  2. LEUPROLIDE ACETATE [Suspect]
     Indication: PROSTATE CANCER
     Dosage: SEE IMAGE
     Dates: start: 20040804
  3. BICALUTAMIDE [Suspect]
     Dosage: SEE IMAGE
     Route: 048
     Dates: start: 20040804, end: 20040824
  4. ESTRAMUSTINE [Suspect]
     Dosage: SEE IMAGE
     Route: 048
     Dates: start: 20040804, end: 20040817
  5. ETOPOSIDE [Suspect]
     Dosage: SEE IMAGE
     Route: 048
     Dates: start: 20040804, end: 20040817
  6. PACLITAXEL [Suspect]
     Dosage: SEE IMAGE
     Route: 042
  7. COUMADIN [Suspect]
     Dosage: SEE IMAGE

REACTIONS (2)
  - PULMONARY EMBOLISM [None]
  - THROMBOSIS [None]
